FAERS Safety Report 14850421 (Version 1)
Quarter: 2018Q2

REPORT INFORMATION
  Report Type: Spontaneous
  Country: IT (occurrence: IT)
  Receive Date: 20180505
  Receipt Date: 20180505
  Transmission Date: 20180711
  Serious: Yes (Other)
  Sender: FDA-Public Use
  Company Number: IT-AUROBINDO-AUR-APL-2018-023990

PATIENT
  Age: 20 Year
  Sex: Male
  Weight: 86 kg

DRUGS (3)
  1. LYRICA [Suspect]
     Active Substance: PREGABALIN
     Indication: PRODUCT USED FOR UNKNOWN INDICATION
     Dosage: 56 DOSAGE FORM, TOTAL
     Route: 048
     Dates: start: 20180416, end: 20180416
  2. PAROXETINE FILM-COATED TABLET [Suspect]
     Active Substance: PAROXETINE
     Indication: PRODUCT USED FOR UNKNOWN INDICATION
     Dosage: 120 DOSAGE FORM, TOTAL
     Route: 048
     Dates: start: 20180416, end: 20180416
  3. HALDOL [Suspect]
     Active Substance: HALOPERIDOL
     Indication: PRODUCT USED FOR UNKNOWN INDICATION
     Dosage: 60 DOSAGE FORM, TOTAL
     Route: 048
     Dates: start: 20180416, end: 20180416

REACTIONS (2)
  - Intentional self-injury [Unknown]
  - Intentional overdose [Unknown]

NARRATIVE: CASE EVENT DATE: 20180416
